FAERS Safety Report 8391551-6 (Version None)
Quarter: 2012Q2

REPORT INFORMATION
  Report Type: 
  Country: None (occurrence: None)
  Receive Date: 20120529
  Receipt Date: 20120522
  Transmission Date: 20120825
  Serious: Yes (Other)
  Sender: FDA-Public Use
  Company Number: US-PFIZER INC-2012093796

PATIENT
  Sex: Female

DRUGS (10)
  1. PRISTIQ [Suspect]
     Indication: BIPOLAR I DISORDER
     Dosage: 50 MG, 1X/DAY
     Route: 048
     Dates: start: 20110709
  2. CYTOXAN [Concomitant]
     Dosage: UNK
  3. LORAZEPAM [Concomitant]
     Dosage: UNK
  4. EPIRUBICIN [Concomitant]
     Dosage: UNK
  5. ASENAPINE [Concomitant]
     Dosage: UNK
  6. AMBIEN [Concomitant]
     Dosage: UNK
  7. PACLITAXEL [Concomitant]
     Dosage: UNK
  8. FLUOROURACIL [Concomitant]
     Dosage: UNK
  9. LAMICTAL [Concomitant]
     Dosage: UNK
  10. METFORMIN [Concomitant]
     Dosage: UNK

REACTIONS (1)
  - BREAST CANCER [None]
